FAERS Safety Report 13900442 (Version 1)
Quarter: 2017Q3

REPORT INFORMATION
  Report Type: Spontaneous
  Country: US (occurrence: None)
  Receive Date: 20170818
  Receipt Date: 20170818
  Transmission Date: 20171127
  Serious: Yes (Life-Threatening, Hospitalization, Other)
  Sender: FDA-Public Use
  Company Number: None

PATIENT
  Age: 74 Year
  Sex: Female
  Weight: 45.36 kg

DRUGS (5)
  1. CLINDAMYCIN. [Suspect]
     Active Substance: CLINDAMYCIN
     Indication: GINGIVITIS
     Route: 048
     Dates: start: 201608, end: 201608
  2. MULTIVITAMIN [Concomitant]
     Active Substance: VITAMINS
  3. PROLIA [Concomitant]
     Active Substance: DENOSUMAB
  4. VITAMIN D [Concomitant]
     Active Substance: CHOLECALCIFEROL
  5. CALCIUM [Concomitant]
     Active Substance: CALCIUM

REACTIONS (2)
  - Clostridium difficile colitis [None]
  - Gastric disorder [None]

NARRATIVE: CASE EVENT DATE: 201608
